FAERS Safety Report 20503136 (Version 1)
Quarter: 2022Q1

REPORT INFORMATION
  Report Type: Spontaneous
  Country: US (occurrence: US)
  Receive Date: 20220222
  Receipt Date: 20220222
  Transmission Date: 20220424
  Serious: Yes (Other)
  Sender: FDA-Public Use
  Company Number: US-MYLANLABS-2022M1014104

PATIENT
  Sex: Female

DRUGS (4)
  1. CLOBETASOL [Suspect]
     Active Substance: CLOBETASOL
     Indication: Morphoea
     Dosage: UNK UNK, BID
     Route: 061
  2. TRIAMCINOLONE [Suspect]
     Active Substance: TRIAMCINOLONE
     Indication: Morphoea
     Dosage: UNK (2.5MG/ML X 0.5ML)
     Route: 026
  3. CALCIPOTRIENE [Suspect]
     Active Substance: CALCIPOTRIENE
     Indication: Morphoea
     Dosage: UNK, BID
     Route: 061
  4. MOMETASONE [Suspect]
     Active Substance: MOMETASONE
     Indication: Morphoea
     Dosage: UNK, BID
     Route: 061

REACTIONS (1)
  - Drug ineffective [Unknown]
